FAERS Safety Report 8779853 (Version 1)
Quarter: 2012Q4

REPORT INFORMATION
  Report Type: 
  Country: US (occurrence: US)
  Receive Date: 20120912
  Receipt Date: 20120912
  Transmission Date: 20130627
  Serious: Yes (Death, Other)
  Sender: FDA-Public Use
  Company Number: US-ROCHE-1103780

PATIENT
  Sex: Female

DRUGS (9)
  1. AVASTIN [Suspect]
     Indication: BRONCHIAL CARCINOMA
     Route: 065
     Dates: end: 20070108
  2. AVASTIN [Suspect]
     Indication: HAEMATOLOGICAL MALIGNANCY
     Route: 065
     Dates: start: 20070202, end: 200703
  3. TARCEVA [Suspect]
     Indication: PRODUCT USED FOR UNKNOWN INDICATION
     Route: 065
     Dates: start: 200802, end: 200810
  4. TAXOTERE [Concomitant]
     Route: 065
     Dates: end: 200703
  5. CARBOPLATIN [Concomitant]
     Route: 065
     Dates: end: 200703
  6. ALIMTA [Concomitant]
     Route: 065
  7. ERBITUX [Concomitant]
     Route: 065
     Dates: start: 200802, end: 200810
  8. CISPLATIN [Concomitant]
     Route: 065
     Dates: start: 200706, end: 200801
  9. ZOMETA [Concomitant]
     Route: 065
     Dates: start: 20070202

REACTIONS (3)
  - Death [Fatal]
  - Neuropathy peripheral [Unknown]
  - Disease progression [Unknown]
